FAERS Safety Report 15699941 (Version 2)
Quarter: 2018Q4

REPORT INFORMATION
  Report Type: Spontaneous
  Country: CZ (occurrence: CZ)
  Receive Date: 20181207
  Receipt Date: 20181219
  Transmission Date: 20190205
  Serious: Yes (Death)
  Sender: FDA-Public Use
  Company Number: CZ-PFIZER INC-2018441320

PATIENT
  Age: 21 Year
  Sex: Female

DRUGS (2)
  1. DOCETAXEL. [Suspect]
     Active Substance: DOCETAXEL
     Indication: NON-SMALL CELL LUNG CANCER METASTATIC
     Dosage: 80 MG/M2, UNK SECOND LINE CHEMOTHERAPY
     Dates: start: 201701
  2. DOCETAXEL. [Suspect]
     Active Substance: DOCETAXEL
     Dosage: UNK
     Dates: start: 201701

REACTIONS (2)
  - Neoplasm progression [Fatal]
  - Infection [Unknown]

NARRATIVE: CASE EVENT DATE: 2017
